FAERS Safety Report 18923084 (Version 1)
Quarter: 2021Q1

REPORT INFORMATION
  Report Type: Spontaneous
  Country: GB (occurrence: GB)
  Receive Date: 20210222
  Receipt Date: 20210222
  Transmission Date: 20210420
  Serious: Yes (Other)
  Sender: FDA-Public Use
  Company Number: GB-MYLANLABS-2021M1010436

PATIENT
  Age: 54 Year
  Sex: Female
  Weight: 70.76 kg

DRUGS (4)
  1. SERTRALINE [Suspect]
     Active Substance: SERTRALINE HYDROCHLORIDE
     Indication: DEPRESSION
     Dosage: 50 MILLIGRAM (50MG INCREASED TO 100MG AND REDUCED TO 50MG)
     Route: 048
     Dates: start: 2016
  2. SERTRALINE [Suspect]
     Active Substance: SERTRALINE HYDROCHLORIDE
     Dosage: 100 MILLIGRAM (50MG INCREASED TO 100MG AND REDUCED TO 50MG)
     Route: 048
     Dates: start: 2016
  3. SERTRALINE [Suspect]
     Active Substance: SERTRALINE HYDROCHLORIDE
     Dosage: 50 MILLIGRAM (50MG INCREASED TO 100MG AND REDUCED TO 50MG)
     Route: 048
     Dates: start: 2016
  4. EVOREL CONTI [Concomitant]
     Active Substance: ESTRADIOL\NORETHINDRONE ACETATE
     Dosage: UNK

REACTIONS (2)
  - Obsessive thoughts [Unknown]
  - Suicidal ideation [Recovered/Resolved]
